FAERS Safety Report 19965803 (Version 1)
Quarter: 2021Q4

REPORT INFORMATION
  Report Type: Report from Study
  Country: US (occurrence: US)
  Receive Date: 20211018
  Receipt Date: 20211018
  Transmission Date: 20220303
  Serious: Yes (Hospitalization)
  Sender: FDA-Public Use
  Company Number: US-EISAI MEDICAL RESEARCH-EC-2021-101277

PATIENT
  Age: 67 Year
  Sex: Female

DRUGS (2)
  1. LENVIMA [Suspect]
     Active Substance: LENVATINIB
     Indication: Endometrial cancer
     Route: 048
     Dates: start: 20210910
  2. KEYTRUDA [Concomitant]
     Active Substance: PEMBROLIZUMAB
     Route: 041

REACTIONS (2)
  - Hypophagia [Unknown]
  - Nausea [Unknown]

NARRATIVE: CASE EVENT DATE: 20210101
